FAERS Safety Report 6397690-3 (Version None)
Quarter: 2009Q4

REPORT INFORMATION
  Report Type: 
  Country: None (occurrence: None)
  Receive Date: 20091007
  Receipt Date: 20090928
  Transmission Date: 20100525
  Serious: Yes (Other)
  Sender: FDA-Public Use
  Company Number: JPI-P-008712

PATIENT
  Age: 47 Year
  Sex: Female
  Weight: 64.4108 kg

DRUGS (9)
  1. XYREM [Suspect]
     Indication: DYSTONIA
     Dosage: SEE IMAGE
     Route: 048
     Dates: start: 20090101, end: 20090101
  2. XYREM [Suspect]
     Indication: DYSTONIA
     Dosage: SEE IMAGE
     Route: 048
     Dates: start: 20090101, end: 20090101
  3. XYREM [Suspect]
     Indication: DYSTONIA
     Dosage: SEE IMAGE
     Route: 048
     Dates: start: 20090601, end: 20090101
  4. XYREM [Suspect]
     Indication: DYSTONIA
     Dosage: SEE IMAGE
     Route: 048
     Dates: start: 20090101, end: 20090915
  5. XYREM [Suspect]
     Indication: DYSTONIA
     Dosage: SEE IMAGE
     Route: 048
     Dates: start: 20090101, end: 20090915
  6. ATOMOXETINE HCL [Concomitant]
  7. NORTRIPTYLINE [Concomitant]
  8. CLONAZEPAM [Concomitant]
  9. CELECOXIB [Concomitant]

REACTIONS (8)
  - ANKLE FRACTURE [None]
  - ASTHENIA [None]
  - FALL [None]
  - FEELING ABNORMAL [None]
  - INSOMNIA [None]
  - NIGHT SWEATS [None]
  - PHOTOPSIA [None]
  - URINARY INCONTINENCE [None]
